FAERS Safety Report 18970232 (Version 4)
Quarter: 2021Q2

REPORT INFORMATION
  Report Type: Spontaneous
  Country: IT (occurrence: IT)
  Receive Date: 20210304
  Receipt Date: 20210402
  Transmission Date: 20210717
  Serious: Yes (Other)
  Sender: FDA-Public Use
  Company Number: NVSC2020IT287155

PATIENT
  Sex: Male

DRUGS (4)
  1. IMATINIB MESILATE [Suspect]
     Active Substance: IMATINIB MESYLATE
     Indication: CHRONIC MYELOID LEUKAEMIA
     Dosage: 400 MG, QD
     Route: 065
  2. EDOXABAN [Interacting]
     Active Substance: EDOXABAN TOSYLATE
     Indication: THROMBOSIS PROPHYLAXIS
     Dosage: 30 MG, QD (RESUMED AT A REDUCED DOSE)
     Route: 048
  3. EDOXABAN [Interacting]
     Active Substance: EDOXABAN TOSYLATE
     Indication: ANTICOAGULANT THERAPY
     Dosage: 30 MG, QD
     Route: 048
  4. EDOXABAN [Interacting]
     Active Substance: EDOXABAN TOSYLATE
     Indication: CHRONIC MYELOID LEUKAEMIA
     Dosage: 60 MG, QD
     Route: 048

REACTIONS (5)
  - Drug interaction [Unknown]
  - Haemorrhage [Recovered/Resolved]
  - Injection site haematoma [Recovered/Resolved]
  - Anticoagulation drug level increased [Recovering/Resolving]
  - Renal failure [Unknown]
